FAERS Safety Report 9491250 (Version 1)
Quarter: 2013Q3

REPORT INFORMATION
  Report Type: Spontaneous
  Country: IE (occurrence: IE)
  Receive Date: 20130830
  Receipt Date: 20130830
  Transmission Date: 20140515
  Serious: Yes (Death, Other)
  Sender: FDA-Public Use
  Company Number: IE-PFIZER INC-2013248174

PATIENT
  Age: 72 Year
  Sex: Male

DRUGS (2)
  1. METHOTREXATE SODIUM [Suspect]
     Indication: RHEUMATOID ARTHRITIS
     Dosage: 12.5 MG, WEEKLY
     Route: 048
  2. DEXAMETHASONE SODIUM PHOSPHATE [Suspect]
     Indication: SPINAL CORD COMPRESSION
     Dosage: 16 MG, UNK
     Route: 042

REACTIONS (1)
  - Necrotising fasciitis [Fatal]
